FAERS Safety Report 13288732 (Version 1)
Quarter: 2017Q1

REPORT INFORMATION
  Report Type: Spontaneous
  Country: US (occurrence: US)
  Receive Date: 20170302
  Receipt Date: 20170302
  Transmission Date: 20170428
  Serious: No
  Sender: FDA-Public Use
  Company Number: US-PFIZER INC-2017089622

PATIENT
  Age: 68 Year
  Sex: Female
  Weight: 64 kg

DRUGS (1)
  1. VENLAFAXINE HCL [Suspect]
     Active Substance: VENLAFAXINE HYDROCHLORIDE
     Indication: ANXIETY
     Dosage: UNK, 1X/DAY
     Route: 048

REACTIONS (2)
  - Abdominal pain upper [Recovered/Resolved]
  - Abdominal discomfort [Recovered/Resolved]
